FAERS Safety Report 4449018-3 (Version None)
Quarter: 2004Q3

REPORT INFORMATION
  Report Type: 
  Country: None (occurrence: None)
  Receive Date: 20040910
  Receipt Date: 20040831
  Transmission Date: 20050211
  Serious: Yes (Hospitalization)
  Sender: FDA-Public Use
  Company Number: 2004231354JP

PATIENT
  Sex: Female

DRUGS (2)
  1. AZULFIDINE EN-TABS [Suspect]
     Indication: RHEUMATOID ARTHRITIS
     Dosage: 500 MG/DAY, ORAL
     Route: 048
     Dates: start: 20040809, end: 20040823
  2. PREDONINE [Concomitant]

REACTIONS (1)
  - PNEUMONIA [None]
